FAERS Safety Report 10525872 (Version 2)
Quarter: 2014Q4

REPORT INFORMATION
  Report Type: Report from Study
  Country: CN (occurrence: CN)
  Receive Date: 20141017
  Receipt Date: 20141107
  Transmission Date: 20150528
  Serious: Yes (Death)
  Sender: FDA-Public Use
  Company Number: PHHY2014CN134336

PATIENT
  Age: 61 Year
  Sex: Female

DRUGS (7)
  1. ACLACINOMYCIN [Concomitant]
     Indication: PRODUCT USED FOR UNKNOWN INDICATION
     Dosage: 20 MG, DAY 1-3
     Route: 065
     Dates: start: 20140109
  2. HOMOHARRINGTONINE [Concomitant]
     Active Substance: OMACETAXINE MEPESUCCINATE
     Dosage: 2 MG, DAY 1-7
     Dates: start: 20140109
  3. ARABINOSYLCYTOSINE [Concomitant]
     Active Substance: CYTARABINE
     Dosage: 150 MG, DAY 1-7
     Dates: start: 20140109
  4. IDAMYCIN [Concomitant]
     Active Substance: IDARUBICIN HYDROCHLORIDE
     Indication: PRODUCT USED FOR UNKNOWN INDICATION
     Dosage: 15 MG, DAY 1 AND 10 MG DAY 1-7
     Route: 065
     Dates: start: 20131116
  5. TASIGNA [Suspect]
     Active Substance: NILOTINIB
     Indication: CHRONIC MYELOID LEUKAEMIA
     Dosage: 800 MG, DAILY
     Route: 048
     Dates: start: 20130913, end: 20140517
  6. HOMOHARRINGTONINE [Concomitant]
     Active Substance: OMACETAXINE MEPESUCCINATE
     Indication: PRODUCT USED FOR UNKNOWN INDICATION
     Dosage: 2 MG, DAY 1-4
     Route: 065
     Dates: start: 20130926
  7. ARABINOSYLCYTOSINE [Concomitant]
     Active Substance: CYTARABINE
     Indication: PRODUCT USED FOR UNKNOWN INDICATION
     Dosage: 10 MG, DAY 5-14
     Route: 065

REACTIONS (1)
  - Blast crisis in myelogenous leukaemia [Fatal]

NARRATIVE: CASE EVENT DATE: 20140827
